FAERS Safety Report 7487562-5 (Version None)
Quarter: 2011Q2

REPORT INFORMATION
  Report Type: 
  Country: None (occurrence: None)
  Receive Date: 20110518
  Receipt Date: 20110512
  Transmission Date: 20111010
  Serious: Yes (Other)
  Sender: FDA-Public Use
  Company Number: US-SANOFI-AVENTIS-2011SA014129

PATIENT
  Age: 67 Year
  Sex: Female
  Weight: 87.54 kg

DRUGS (9)
  1. INVESTIGATIONAL DRUG [Concomitant]
     Indication: ANTICOAGULANT THERAPY
     Dates: start: 20101001
  2. LISINOPRIL [Concomitant]
     Dates: start: 20090301
  3. MULTI-VITAMINS [Concomitant]
     Dosage: 1 TAB DAILY
     Dates: start: 20050301
  4. MULTAQ [Suspect]
     Indication: ATRIAL FIBRILLATION
     Route: 048
     Dates: start: 20091006
  5. VITAMIN B COMPLEX CAP [Concomitant]
     Dosage: 1 TABLET DAILY
     Dates: start: 20050301
  6. PINDOLOL [Concomitant]
     Dosage: TAKE 0.5 MG TABLET DAILY
     Dates: start: 20100801, end: 20110201
  7. HYDROCHLOROTHIAZIDE [Concomitant]
     Dosage: TAKE A 1/2 TABLET EVERY DAY
     Dates: start: 20090301
  8. ACETAMINOPHEN [Concomitant]
  9. FISH OIL [Concomitant]
     Dates: start: 20091001

REACTIONS (8)
  - PALPITATIONS [None]
  - DYSPNOEA [None]
  - TACHYCARDIA [None]
  - FATIGUE [None]
  - ELECTROCARDIOGRAM PR PROLONGATION [None]
  - HYPERHIDROSIS [None]
  - ATRIAL FIBRILLATION [None]
  - MALAISE [None]
